FAERS Safety Report 4893895-9 (Version None)
Quarter: 2006Q1

REPORT INFORMATION
  Report Type: 
  Country: None (occurrence: None)
  Receive Date: 20060127
  Receipt Date: 20051104
  Transmission Date: 20060701
  Serious: No
  Sender: FDA-Public Use
  Company Number: US-BRISTOL-MYERS SQUIBB COMPANY-13178009

PATIENT
  Age: 18 Month
  Sex: Male

DRUGS (2)
  1. CEFZIL [Suspect]
     Indication: PNEUMONIA
     Dosage: 3/4 OF A TABLESPOON TWICE DAILY
     Route: 048
     Dates: start: 20051024, end: 20051029
  2. ROCEPHIN [Concomitant]
     Route: 030
     Dates: start: 20051024

REACTIONS (1)
  - CONVULSION [None]
